FAERS Safety Report 25208779 (Version 1)
Quarter: 2025Q2

REPORT INFORMATION
  Report Type: Spontaneous
  Country: US (occurrence: US)
  Receive Date: 20250417
  Receipt Date: 20250417
  Transmission Date: 20250716
  Serious: No
  Sender: BRISTOL MYERS SQUIBB
  Company Number: US-BRISTOL-MYERS SQUIBB COMPANY-2025-054667

PATIENT
  Age: 84 Year
  Sex: Male
  Weight: 81.19 kg

DRUGS (1)
  1. REVLIMID [Suspect]
     Active Substance: LENALIDOMIDE
     Indication: Myelodysplastic syndrome
     Route: 048

REACTIONS (4)
  - Haemoglobin decreased [Recovering/Resolving]
  - Platelet count decreased [Recovering/Resolving]
  - Fatigue [Recovering/Resolving]
  - Dizziness [Recovering/Resolving]
